FAERS Safety Report 4474755-4 (Version None)
Quarter: 2004Q4

REPORT INFORMATION
  Report Type: 
  Country: None (occurrence: None)
  Receive Date: 20041012
  Receipt Date: 20040928
  Transmission Date: 20050328
  Serious: Yes (Hospitalization)
  Sender: FDA-Public Use
  Company Number: MK200410-0042-1

PATIENT
  Age: 69 Year
  Sex: Female

DRUGS (7)
  1. ANAFRANIL [Suspect]
     Indication: DEPRESSION
     Dosage: 75MG, DAILY
     Dates: start: 20031120, end: 20031202
  2. ZOLEDRONATE (CLINICAL TRIAL) [Suspect]
     Indication: OSTEOPOROSIS
     Dates: start: 20020730
  3. OROCAL [Concomitant]
  4. MOPRAL [Concomitant]
  5. GELUPRANE [Concomitant]
  6. ERGOCALIFEROL [Concomitant]
  7. KETOPROFEN [Concomitant]

REACTIONS (3)
  - BIPOLAR I DISORDER [None]
  - DEPRESSION [None]
  - HALLUCINATION, VISUAL [None]
